FAERS Safety Report 6919420-6 (Version None)
Quarter: 2010Q3

REPORT INFORMATION
  Report Type: 
  Country: None (occurrence: None)
  Receive Date: 20100811
  Receipt Date: 20100803
  Transmission Date: 20110219
  Serious: Yes (Hospitalization)
  Sender: FDA-Public Use
  Company Number: A0875023A

PATIENT
  Age: 51 Year
  Sex: Male

DRUGS (1)
  1. AVANDIA [Suspect]
     Route: 048
     Dates: start: 20000101, end: 20020101

REACTIONS (8)
  - ANKLE FRACTURE [None]
  - CARDIAC DISORDER [None]
  - CARDIAC FAILURE CONGESTIVE [None]
  - FOOT FRACTURE [None]
  - RENAL FAILURE [None]
  - RENAL INJURY [None]
  - WEIGHT INCREASED [None]
  - WRIST FRACTURE [None]
